FAERS Safety Report 18025402 (Version 4)
Quarter: 2022Q3

REPORT INFORMATION
  Report Type: Other
  Country: US (occurrence: None)
  Receive Date: 20200715
  Receipt Date: 20220909
  Transmission Date: 20221027
  Serious: Yes (Hospitalization, Other)
  Sender: FDA-Public Use
  Company Number: US-ROCHE-2638726

PATIENT
  Sex: Female
  Weight: 61.290 kg

DRUGS (17)
  1. ACTEMRA [Suspect]
     Active Substance: TOCILIZUMAB
     Indication: Rheumatoid arthritis
     Dosage: THERAPY STATUS; ONGOING:YES
     Route: 058
     Dates: start: 20150101
  2. ACTEMRA [Suspect]
     Active Substance: TOCILIZUMAB
  3. ACTEMRA [Suspect]
     Active Substance: TOCILIZUMAB
     Indication: Rheumatoid arthritis
  4. ACTEMRA [Suspect]
     Active Substance: TOCILIZUMAB
  5. ACTEMRA [Suspect]
     Active Substance: TOCILIZUMAB
     Indication: Ill-defined disorder
  6. ACTEMRA [Suspect]
     Active Substance: TOCILIZUMAB
  7. AZATHIOPRINE [Concomitant]
     Active Substance: AZATHIOPRINE
     Indication: Rheumatoid arthritis
     Dosage: ONGOING:YES
     Route: 048
     Dates: start: 2016
  8. GABAPENTIN [Concomitant]
     Active Substance: GABAPENTIN
     Indication: Neuropathy peripheral
     Dosage: ONGOING:YES
     Route: 048
     Dates: start: 2013
  9. BENAZEPRIL [Concomitant]
     Active Substance: BENAZEPRIL HYDROCHLORIDE
     Indication: Hypertension
     Dosage: ONGOING:YES
     Route: 048
     Dates: start: 2020
  10. LEVOTHYROXINE [Concomitant]
     Active Substance: LEVOTHYROXINE
     Indication: Hormone replacement therapy
     Route: 048
  11. PRAVASTATIN [Concomitant]
     Active Substance: PRAVASTATIN
     Indication: Blood cholesterol increased
     Route: 048
  12. METFORMIN [Concomitant]
     Active Substance: METFORMIN HYDROCHLORIDE
     Indication: Diabetes mellitus
     Route: 048
  13. GLIPIZIDE ER [Concomitant]
     Active Substance: GLIPIZIDE
  14. HYDROCODONE [Concomitant]
     Active Substance: HYDROCODONE
  15. ACETAMINOPHEN [Concomitant]
     Active Substance: ACETAMINOPHEN
  16. NAPROXEN SODIUM [Concomitant]
     Active Substance: NAPROXEN SODIUM
  17. ALENDRONATE SODIUM [Concomitant]
     Active Substance: ALENDRONATE SODIUM
     Indication: Osteoporosis
     Route: 048
     Dates: start: 2012

REACTIONS (15)
  - Pneumonia [Recovered/Resolved]
  - Femur fracture [Recovered/Resolved with Sequelae]
  - Arthropathy [Recovered/Resolved]
  - Lower limb fracture [Recovered/Resolved with Sequelae]
  - Fall [Unknown]
  - Pulmonary mass [Recovered/Resolved]
  - Neoplasm malignant [Unknown]
  - Arthritis [Unknown]
  - Limb asymmetry [Not Recovered/Not Resolved]
  - Body height decreased [Not Recovered/Not Resolved]
  - Neuropathy peripheral [Not Recovered/Not Resolved]
  - Arthralgia [Not Recovered/Not Resolved]
  - Back pain [Not Recovered/Not Resolved]
  - Depression [Not Recovered/Not Resolved]
  - Memory impairment [Not Recovered/Not Resolved]

NARRATIVE: CASE EVENT DATE: 20190101
